FAERS Safety Report 6871221-3 (Version None)
Quarter: 2010Q3

REPORT INFORMATION
  Report Type: 
  Country: None (occurrence: None)
  Receive Date: 20100723
  Receipt Date: 20100712
  Transmission Date: 20110219
  Serious: Yes (Other)
  Sender: FDA-Public Use
  Company Number: US-PFIZER INC-2010011801

PATIENT
  Sex: Male

DRUGS (4)
  1. CHANTIX [Suspect]
     Indication: SMOKING CESSATION THERAPY
     Dosage: UNK
     Route: 048
     Dates: start: 20071101, end: 20080301
  2. NEXIUM [Concomitant]
     Indication: DYSPEPSIA
     Dosage: UNK
     Dates: start: 20050101
  3. ENALAPRIL [Concomitant]
     Indication: BLOOD PRESSURE
     Dosage: UNK
     Dates: start: 20050101
  4. XANAX [Concomitant]
     Indication: STRESS
     Dosage: UNK
     Dates: start: 20050101

REACTIONS (7)
  - ABNORMAL BEHAVIOUR [None]
  - ABNORMAL DREAMS [None]
  - AGGRESSION [None]
  - ANGER [None]
  - ANXIETY [None]
  - DEPRESSION [None]
  - SUICIDAL IDEATION [None]
